FAERS Safety Report 10695621 (Version 1)
Quarter: 2015Q1

REPORT INFORMATION
  Report Type: Report from Study
  Country: US (occurrence: US)
  Receive Date: 20150107
  Receipt Date: 20150107
  Transmission Date: 20150721
  Serious: Yes (Other)
  Sender: FDA-Public Use
  Company Number: PHEH2014US025960

PATIENT
  Sex: Female

DRUGS (2)
  1. GLEEVEC [Suspect]
     Active Substance: IMATINIB MESYLATE
     Dosage: 400 MG, BID
     Route: 048
  2. GLEEVEC [Suspect]
     Active Substance: IMATINIB MESYLATE
     Indication: SOFT TISSUE SARCOMA
     Dosage: 400 MG, QD
     Route: 048

REACTIONS (13)
  - Adrenal disorder [Unknown]
  - Gastrointestinal stromal tumour [Unknown]
  - Renal cyst [Unknown]
  - Diarrhoea [Unknown]
  - Soft tissue sarcoma [Unknown]
  - Conjunctival haemorrhage [Unknown]
  - Hepatic lesion [Unknown]
  - Fatigue [Unknown]
  - Lacrimation increased [Unknown]
  - Neoplasm recurrence [Unknown]
  - Conjunctival oedema [Unknown]
  - Malignant neoplasm progression [Unknown]
  - Muscle spasms [Unknown]
